FAERS Safety Report 10077326 (Version 2)
Quarter: 2014Q2

REPORT INFORMATION
  Report Type: Spontaneous
  Country: US (occurrence: US)
  Receive Date: 20140414
  Receipt Date: 20140414
  Transmission Date: 20141212
  Serious: No
  Sender: FDA-Public Use
  Company Number: US-BANPHARM-20131329

PATIENT
  Age: 52 Year
  Sex: Female

DRUGS (7)
  1. ALEVE LIQUID GELS 220 MG [Suspect]
     Indication: PAIN
     Dosage: 1 DF, PRN,
     Route: 048
  2. CLONAZEPAM [Concomitant]
  3. VYVANSE [Concomitant]
  4. NO DOZE [Concomitant]
  5. VIVARIN [Concomitant]
  6. ADVIL [Concomitant]
  7. EXCEDRINE [Concomitant]

REACTIONS (1)
  - Somnolence [Unknown]
